FAERS Safety Report 15801562 (Version 1)
Quarter: 2019Q1

REPORT INFORMATION
  Report Type: Report from Study
  Country: FR (occurrence: FR)
  Receive Date: 20190109
  Receipt Date: 20190109
  Transmission Date: 20190417
  Serious: Yes (Other)
  Sender: FDA-Public Use
  Company Number: FR-MYLANLABS-2019M1001635

PATIENT
  Age: 42 Year
  Sex: Female

DRUGS (4)
  1. NEVIRAPINE. [Concomitant]
     Active Substance: NEVIRAPINE
     Indication: HIV INFECTION
     Dosage: AS A PART OF HIGHLY ACTIVE ANTIRETROVIRAL THERAPY (HAART) REGIMEN
     Route: 065
  2. RITUXIMAB. [Suspect]
     Active Substance: RITUXIMAB
     Indication: NEPHROTIC SYNDROME
     Route: 065
  3. RALTEGRAVIR. [Concomitant]
     Active Substance: RALTEGRAVIR
     Indication: HIV INFECTION
     Dosage: AS A PART OF HIGHLY ACTIVE ANTIRETROVIRAL THERAPY (HAART) REGIMEN
     Route: 065
  4. TENOFOVIR [Suspect]
     Active Substance: TENOFOVIR
     Indication: HIV INFECTION
     Dosage: AS A PART OF HIGHLY ACTIVE ANTIRETROVIRAL THERAPY (HAART) REGIMEN
     Route: 065

REACTIONS (3)
  - Pyelonephritis [Unknown]
  - Acute kidney injury [Unknown]
  - Clostridium difficile colitis [Unknown]
